FAERS Safety Report 17757396 (Version 2)
Quarter: 2020Q3

REPORT INFORMATION
  Report Type: Spontaneous
  Country: AR (occurrence: AR)
  Receive Date: 20200507
  Receipt Date: 20200819
  Transmission Date: 20201102
  Serious: No
  Sender: FDA-Public Use
  Company Number: AR-TOLMAR, INC.-20AR021023

PATIENT

DRUGS (3)
  1. ELIGARD [Suspect]
     Active Substance: LEUPROLIDE ACETATE
     Indication: PROSTATE CANCER
     Dosage: 45 MG, TWICE A YEAR
     Route: 058
     Dates: start: 20200409
  2. BICALUTAMIDA [Concomitant]
     Active Substance: BICALUTAMIDE
     Indication: PROSTATE CANCER
     Route: 065
  3. ELIGARD [Suspect]
     Active Substance: LEUPROLIDE ACETATE
     Dosage: 45 MG, TWICE A YEAR
     Route: 058
     Dates: start: 201902

REACTIONS (3)
  - Intercepted product administration error [None]
  - Product physical consistency issue [None]
  - Syringe issue [None]

NARRATIVE: CASE EVENT DATE: 20200409
